FAERS Safety Report 10268466 (Version 1)
Quarter: 2014Q2

REPORT INFORMATION
  Report Type: Spontaneous
  Country: GB (occurrence: GB)
  Receive Date: 20140630
  Receipt Date: 20140630
  Transmission Date: 20141212
  Serious: Yes (Disabling)
  Sender: FDA-Public Use
  Company Number: GB-WATSON-2014-13764

PATIENT
  Age: 65 Year
  Sex: Female
  Weight: 64 kg

DRUGS (1)
  1. OXYBUTYNIN (UNKNOWN) [Suspect]
     Indication: PRODUCT USED FOR UNKNOWN INDICATION
     Dosage: UNK
     Route: 065
     Dates: start: 20140514

REACTIONS (3)
  - Abdominal discomfort [Recovering/Resolving]
  - Pelvic discomfort [Recovering/Resolving]
  - Malaise [Unknown]
